FAERS Safety Report 15186358 (Version 1)
Quarter: 2018Q3

REPORT INFORMATION
  Report Type: Report from Study
  Country: US (occurrence: US)
  Receive Date: 20180723
  Receipt Date: 20180723
  Transmission Date: 20181010
  Serious: No
  Sender: FDA-Public Use
  Company Number: US-EXELIXIS-CABO-18014057

PATIENT
  Sex: Female

DRUGS (28)
  1. CABOMETYX [Suspect]
     Active Substance: CABOZANTINIB S-MALATE
     Indication: RENAL CANCER
     Dosage: 40 MG, QD
     Route: 048
     Dates: start: 20180419
  2. RANITIDINE. [Concomitant]
     Active Substance: RANITIDINE
  3. MULTIVITAMINS COMBINATIONS [Concomitant]
  4. ASPIRIN. [Concomitant]
     Active Substance: ASPIRIN
  5. VITAMIN D3 [Concomitant]
     Active Substance: CHOLECALCIFEROL
  6. GABAPENTIN. [Concomitant]
     Active Substance: GABAPENTIN
  7. AMOXICLAV [Concomitant]
     Active Substance: AMOXICILLIN\CLAVULANIC ACID
  8. PROLIA [Concomitant]
     Active Substance: DENOSUMAB
  9. VITAMIN D2 [Concomitant]
     Active Substance: ERGOCALCIFEROL
  10. AMOXICILLIN + CLAV. POTASSIUM [Concomitant]
     Active Substance: AMOXICILLIN\CLAVULANATE POTASSIUM
  11. CABOMETYX [Suspect]
     Active Substance: CABOZANTINIB S-MALATE
     Dosage: 20 MG, QD
     Route: 048
     Dates: start: 20180613
  12. NYSTATIN. [Concomitant]
     Active Substance: NYSTATIN
  13. FLUTICASONE. [Concomitant]
     Active Substance: FLUTICASONE
  14. ASPIRIN. [Concomitant]
     Active Substance: ASPIRIN
  15. COMBIVENT [Concomitant]
     Active Substance: ALBUTEROL SULFATE\IPRATROPIUM BROMIDE
  16. BIOTIN [Concomitant]
     Active Substance: BIOTIN
  17. NOVOLOG [Concomitant]
     Active Substance: INSULIN ASPART
  18. CEPHALEXIN. [Concomitant]
     Active Substance: CEPHALEXIN
  19. DOCUSATE SODIUM. [Concomitant]
     Active Substance: DOCUSATE SODIUM
  20. CALCITROL [Concomitant]
     Active Substance: CALCITRIOL
  21. BASAGLAR [Concomitant]
     Active Substance: INSULIN GLARGINE
  22. TRAMADOL HCL [Concomitant]
     Active Substance: TRAMADOL HYDROCHLORIDE
  23. PROPRANOLOL [Concomitant]
     Active Substance: PROPRANOLOL HYDROCHLORIDE
  24. LIDOCAINE. [Concomitant]
     Active Substance: LIDOCAINE
  25. IBUPROFEN. [Concomitant]
     Active Substance: IBUPROFEN
  26. TRAMADOL. [Concomitant]
     Active Substance: TRAMADOL
  27. GLUCOSE [Concomitant]
     Active Substance: DEXTROSE
  28. FERROUS SULFATE. [Concomitant]
     Active Substance: FERROUS SULFATE

REACTIONS (10)
  - Stomatitis [Unknown]
  - Dry skin [Unknown]
  - Acne [Unknown]
  - Pain in extremity [Unknown]
  - Constipation [Unknown]
  - Nausea [Unknown]
  - Rash [Unknown]
  - Urine odour abnormal [Unknown]
  - Neuropathy peripheral [Unknown]
  - Skin ulcer [Unknown]

NARRATIVE: CASE EVENT DATE: 2018
